FAERS Safety Report 9708589 (Version 2)
Quarter: 2014Q1

REPORT INFORMATION
  Report Type: Spontaneous
  Country: BR (occurrence: BR)
  Receive Date: 20131125
  Receipt Date: 20140115
  Transmission Date: 20141002
  Serious: Yes (Other)
  Sender: FDA-Public Use
  Company Number: PHHY2013BR134369

PATIENT
  Age: 66 Year
  Sex: Female

DRUGS (2)
  1. EXFORGE HCT [Suspect]
     Indication: HYPERTENSION
     Dosage: 1 DF, IN THE MORNING (FASTING) (160 MG VALS, 5 MG AMLO AND 12.5 MG HYDRO)
     Route: 048
     Dates: start: 20131119
  2. SIMVASTATIN [Concomitant]
     Indication: BLOOD CHOLESTEROL INCREASED
     Dosage: 1 DF, IN THE MORNING
     Route: 048

REACTIONS (1)
  - Blood pressure increased [Recovering/Resolving]
